FAERS Safety Report 7457239-0 (Version None)
Quarter: 2011Q2

REPORT INFORMATION
  Report Type: 
  Country: None (occurrence: None)
  Receive Date: 20110504
  Receipt Date: 20110428
  Transmission Date: 20111010
  Serious: Yes (Other)
  Sender: FDA-Public Use
  Company Number: US-PFIZER INC-2011092273

PATIENT
  Sex: Female
  Weight: 63.492 kg

DRUGS (2)
  1. COZAAR [Concomitant]
     Indication: HYPERTENSION
     Dosage: UNK
  2. ADVIL LIQUI-GELS [Suspect]
     Indication: OSTEOARTHRITIS
     Dosage: 400 MG, 2X/DAY
     Route: 048
     Dates: end: 20110119

REACTIONS (1)
  - GASTRIC ULCER [None]
